FAERS Safety Report 17484546 (Version 1)
Quarter: 2020Q1

REPORT INFORMATION
  Report Type: Spontaneous
  Country: FR (occurrence: FR)
  Receive Date: 20200302
  Receipt Date: 20200302
  Transmission Date: 20200409
  Serious: Yes (Disabling, Other)
  Sender: FDA-Public Use
  Company Number: FR-MYLANLABS-2020M1021779

PATIENT
  Age: 58 Year
  Sex: Female

DRUGS (1)
  1. CELECOXIB. [Suspect]
     Active Substance: CELECOXIB
     Indication: BACK PAIN
     Dosage: UNK
     Route: 065
     Dates: start: 201506, end: 20190507

REACTIONS (7)
  - Retinal vein occlusion [Unknown]
  - Papilloedema [Unknown]
  - Ocular hypertension [Unknown]
  - Retinal haemorrhage [Unknown]
  - Iris neovascularisation [Unknown]
  - Vision blurred [Unknown]
  - Macular oedema [Unknown]
